FAERS Safety Report 19820475 (Version 1)
Quarter: 2021Q3

REPORT INFORMATION
  Report Type: Spontaneous
  Country: US (occurrence: US)
  Receive Date: 20210909
  Receipt Date: 20210909
  Transmission Date: 20211014
  Serious: Yes (Hospitalization)
  Sender: FDA-Public Use
  Company Number: None

PATIENT
  Age: 69 Year
  Sex: Female
  Weight: 61.1 kg

DRUGS (1)
  1. DULOXETINE HYDROCHLORIDE. [Suspect]
     Active Substance: DULOXETINE HYDROCHLORIDE
     Dates: end: 20210804

REACTIONS (17)
  - Abdominal pain upper [None]
  - Nausea [None]
  - Faeces discoloured [None]
  - Pancreatitis [None]
  - Fatigue [None]
  - Treatment noncompliance [None]
  - Abdominal pain [None]
  - Early satiety [None]
  - Melaena [None]
  - Arthritis [None]
  - Diarrhoea [None]
  - Dyspnoea exertional [None]
  - Asthenia [None]
  - Hypophagia [None]
  - Dyspnoea [None]
  - Pain [None]
  - Abdominal discomfort [None]

NARRATIVE: CASE EVENT DATE: 20210809
